FAERS Safety Report 16647486 (Version 1)
Quarter: 2019Q3

REPORT INFORMATION
  Report Type: Spontaneous
  Country: US (occurrence: US)
  Receive Date: 20190730
  Receipt Date: 20190730
  Transmission Date: 20191004
  Serious: No
  Sender: FDA-Public Use
  Company Number: US-PFIZER INC-2019322689

PATIENT
  Age: 57 Year
  Sex: Male
  Weight: 103 kg

DRUGS (1)
  1. METHOTREXATE SODIUM. [Suspect]
     Active Substance: METHOTREXATE SODIUM
     Dosage: UNK, WEEKLY (ONCE A WEEK), 1 G VIAL

REACTIONS (1)
  - Therapeutic product effect incomplete [Unknown]
